FAERS Safety Report 9194318 (Version 2)
Quarter: 2013Q2

REPORT INFORMATION
  Report Type: Spontaneous
  Country: US (occurrence: US)
  Receive Date: 20130327
  Receipt Date: 20130614
  Transmission Date: 20140414
  Serious: Yes (Hospitalization)
  Sender: FDA-Public Use
  Company Number: US-GILEAD-2013-0072241

PATIENT
  Age: 42 Year
  Sex: Female

DRUGS (5)
  1. LETAIRIS [Suspect]
     Indication: PULMONARY HYPERTENSION
     Dosage: 10 MG, QD
     Dates: start: 20121206
  2. LETAIRIS [Suspect]
     Indication: PULMONARY HYPERTENSION
  3. VENTAVIS [Concomitant]
     Indication: PULMONARY ARTERIAL HYPERTENSION
     Dates: start: 201207
  4. WARFARIN [Concomitant]
     Indication: PULMONARY HYPERTENSION
  5. WARFARIN [Concomitant]
     Indication: PULMONARY HYPERTENSION

REACTIONS (5)
  - Blindness [Not Recovered/Not Resolved]
  - Hyperhidrosis [Not Recovered/Not Resolved]
  - Oxygen saturation decreased [Unknown]
  - Anticoagulation drug level below therapeutic [Unknown]
  - Dizziness [Not Recovered/Not Resolved]
